FAERS Safety Report 7718336-5 (Version None)
Quarter: 2011Q3

REPORT INFORMATION
  Report Type: 
  Country: None (occurrence: None)
  Receive Date: 20110824
  Receipt Date: 20110817
  Transmission Date: 20111222
  Serious: Yes (Other)
  Sender: FDA-Public Use
  Company Number: A0941530A

PATIENT
  Sex: Female

DRUGS (1)
  1. ASPIRIN + CAFFEINE + PARACETAMOL (FORMULATION  ) (ACETAMINOPHEN + ASPI [Suspect]
     Dosage: ORAL
     Route: 048

REACTIONS (1)
  - DRUG DEPENDENCE [None]
